FAERS Safety Report 7531477-0 (Version None)
Quarter: 2011Q2

REPORT INFORMATION
  Report Type: 
  Country: None (occurrence: None)
  Receive Date: 20110608
  Receipt Date: 20110527
  Transmission Date: 20111010
  Serious: Yes (Other)
  Sender: FDA-Public Use
  Company Number: KR-SANOFI-AVENTIS-2011SA028785

PATIENT
  Age: 73 Year
  Sex: Female
  Weight: 55 kg

DRUGS (12)
  1. APIDRA SOLOSTAR [Suspect]
     Indication: DIABETES MELLITUS
     Dosage: DOSE:2 UNIT(S)
     Route: 051
     Dates: start: 20101101, end: 20110429
  2. SOLOSTAR [Suspect]
     Dates: start: 20101109, end: 20110429
  3. LANTUS [Suspect]
     Dosage: DOSE:2 UNIT(S)
     Route: 051
     Dates: start: 20110430, end: 20110430
  4. APIDRA SOLOSTAR [Suspect]
     Dosage: DOSE:40 UNIT(S)
     Route: 051
     Dates: start: 20110430, end: 20110430
  5. SOLOSTAR [Suspect]
     Dates: start: 20110430, end: 20110430
  6. LANTUS [Suspect]
     Indication: DIABETES MELLITUS
     Dosage: DOSE:40 UNIT(S)
     Route: 051
     Dates: start: 20101109, end: 20110429
  7. SOLOSTAR [Suspect]
     Indication: DIABETES MELLITUS
     Dates: start: 20101101, end: 20110429
  8. SOLOSTAR [Suspect]
     Dates: start: 20110501
  9. APIDRA SOLOSTAR [Suspect]
     Dosage: DOSE:2 UNIT(S)
     Route: 051
     Dates: start: 20110501
  10. SOLOSTAR [Suspect]
     Dates: start: 20110430, end: 20110430
  11. SOLOSTAR [Suspect]
     Dates: start: 20110501
  12. LANTUS [Suspect]
     Dosage: DOSE:40 UNIT(S)
     Route: 051
     Dates: start: 20110501

REACTIONS (6)
  - WRONG DRUG ADMINISTERED [None]
  - HYPOGLYCAEMIA [None]
  - HYPERGLYCAEMIA [None]
  - DEPRESSED LEVEL OF CONSCIOUSNESS [None]
  - COLD SWEAT [None]
  - ASTHENIA [None]
